FAERS Safety Report 4583415-0 (Version None)
Quarter: 2005Q1

REPORT INFORMATION
  Report Type: 
  Country: None (occurrence: None)
  Receive Date: 20050211
  Receipt Date: 20050201
  Transmission Date: 20050727
  Serious: Yes (Death, Hospitalization)
  Sender: FDA-Public Use
  Company Number: 2005024337

PATIENT
  Age: 80 Year
  Sex: Female

DRUGS (6)
  1. CELEBRA [Suspect]
     Indication: OSTEOARTHRITIS
     Dosage: 200 MG (100 MG, 1 IN 2 D), ORAL
     Route: 048
     Dates: start: 20041122
  2. ACETAMINOPHEN [Concomitant]
  3. ACETYLCYSTEINE [Concomitant]
  4. ATENOLOL [Concomitant]
  5. DIGITOXIN TAB [Concomitant]
  6. RANITIDINE [Concomitant]

REACTIONS (8)
  - CEREBRAL HAEMORRHAGE [None]
  - DUODENAL ULCER [None]
  - EPISTAXIS [None]
  - FALL [None]
  - GASTRIC ULCER [None]
  - GASTROINTESTINAL ULCER [None]
  - HAEMATEMESIS [None]
  - HAEMORRHAGE [None]
